FAERS Safety Report 5602428-0 (Version None)
Quarter: 2008Q1

REPORT INFORMATION
  Report Type: 
  Country: None (occurrence: None)
  Receive Date: 20080125
  Receipt Date: 20080111
  Transmission Date: 20080703
  Serious: Yes (Death)
  Sender: FDA-Public Use
  Company Number: US-ELI_LILLY_AND_COMPANY-US200801002335

PATIENT
  Age: 55 Year
  Sex: Female

DRUGS (3)
  1. CYMBALTA [Suspect]
     Indication: PAIN
     Dosage: 60 MG, UNK
     Dates: start: 20060101
  2. CYMBALTA [Suspect]
     Dosage: 120 MG, UNK
  3. BENZODIAZEPINE DERIVATIVES [Concomitant]

REACTIONS (1)
  - DEATH [None]
